FAERS Safety Report 21311728 (Version 1)
Quarter: 2022Q3

REPORT INFORMATION
  Report Type: Spontaneous
  Country: US (occurrence: None)
  Receive Date: 20220909
  Receipt Date: 20220909
  Transmission Date: 20221027
  Serious: No
  Sender: FDA-Public Use
  Company Number: US-ARIS GLOBAL-202203-0382

PATIENT
  Sex: Female

DRUGS (14)
  1. OXERVATE [Suspect]
     Active Substance: CENEGERMIN-BKBJ
     Indication: Neurotrophic keratopathy
     Route: 047
     Dates: start: 20220207
  2. ARTIFICIAL TEARS [Concomitant]
     Active Substance: GLYCERIN\HYPROMELLOSES\POLYETHYLENE GLYCOL 400
     Dosage: 0.3%-1%
  3. XIIDRA [Concomitant]
     Active Substance: LIFITEGRAST
  4. CHONDROITIN SULFATE A\GLUCOSAMINE [Concomitant]
     Active Substance: CHONDROITIN SULFATE A\GLUCOSAMINE
     Dosage: 750-644 MG
  5. COD LIVER OIL [Concomitant]
     Active Substance: COD LIVER OIL
  6. BIOTIN [Concomitant]
     Active Substance: BIOTIN
  7. DIETARY SUPPLEMENT [Concomitant]
     Active Substance: DIETARY SUPPLEMENT
  8. PRASTERONE [Concomitant]
     Active Substance: PRASTERONE
     Dosage: 10 MG-47 MG
  9. VITAMIN D3-ALOE [Concomitant]
     Dosage: 120 MG-1000
  10. LEVOMEFOLIC ACID\METHYLCOBALAMIN\TURMERIC [Concomitant]
     Active Substance: LEVOMEFOLIC ACID\METHYLCOBALAMIN\TURMERIC
     Dosage: 1-1-500 MG
  11. HYDROXYCHLOROQUINE SULFATE [Concomitant]
     Active Substance: HYDROXYCHLOROQUINE SULFATE
  12. XELJANZ XR [Concomitant]
     Active Substance: TOFACITINIB CITRATE
  13. METFORMIN ER GASTRIC [Concomitant]
  14. PREDNISONE [Concomitant]
     Active Substance: PREDNISONE

REACTIONS (1)
  - Nasal discomfort [Recovering/Resolving]
